FAERS Safety Report 11596515 (Version 1)
Quarter: 2015Q4

REPORT INFORMATION
  Report Type: Spontaneous
  Country: US (occurrence: US)
  Receive Date: 20151006
  Receipt Date: 20151006
  Transmission Date: 20160304
  Serious: No
  Sender: FDA-Public Use
  Company Number: US-EMD SERONO-8045277

PATIENT
  Sex: Male

DRUGS (1)
  1. REBIF [Suspect]
     Active Substance: INTERFERON BETA-1A
     Indication: PRODUCT USED FOR UNKNOWN INDICATION

REACTIONS (18)
  - Swelling face [Unknown]
  - Ear swelling [Unknown]
  - Joint swelling [Unknown]
  - Dysphagia [Unknown]
  - Road traffic accident [Unknown]
  - Pharyngeal oedema [Unknown]
  - Vitamin D deficiency [Unknown]
  - Cognitive disorder [Not Recovered/Not Resolved]
  - Blood pressure increased [Unknown]
  - Mobility decreased [Unknown]
  - Sensory loss [Not Recovered/Not Resolved]
  - Drug hypersensitivity [Not Recovered/Not Resolved]
  - Dyspnoea [Unknown]
  - Hemiparesis [Not Recovered/Not Resolved]
  - Urinary tract infection [Unknown]
  - Feeling abnormal [Unknown]
  - Uhthoff^s phenomenon [Unknown]
  - Photosensitivity reaction [Not Recovered/Not Resolved]
